FAERS Safety Report 20685479 (Version 1)
Quarter: 2022Q2

REPORT INFORMATION
  Report Type: Spontaneous
  Country: NL (occurrence: NL)
  Receive Date: 20220407
  Receipt Date: 20220407
  Transmission Date: 20220721
  Serious: Yes (Other)
  Sender: FDA-Public Use
  Company Number: None

PATIENT
  Age: 23 Year
  Sex: Female

DRUGS (3)
  1. TOPAMAX [Suspect]
     Active Substance: TOPIRAMATE
     Indication: Migraine
     Dosage: 1 X PER DAG 1 STUK
     Route: 048
     Dates: start: 20220323, end: 20220324
  2. CANDESARTAN [Concomitant]
     Active Substance: CANDESARTAN
     Dosage: TABLET, 16 MG (MILLIGRAM)
     Route: 065
  3. DELAMONIE [Concomitant]
     Dosage: OMHULDE TABLET, 0,075 MG (MILLIGRAM)
     Route: 065

REACTIONS (14)
  - Angina pectoris [Recovering/Resolving]
  - Abdominal discomfort [Not Recovered/Not Resolved]
  - Paraesthesia [Not Recovered/Not Resolved]
  - Dry mouth [Not Recovered/Not Resolved]
  - Nausea [Not Recovered/Not Resolved]
  - Dry eye [Not Recovered/Not Resolved]
  - Restlessness [Not Recovered/Not Resolved]
  - Confusional state [Not Recovered/Not Resolved]
  - Tinnitus [Recovering/Resolving]
  - Suspiciousness [Recovering/Resolving]
  - Mood swings [Unknown]
  - Eye pain [Not Recovered/Not Resolved]
  - Depressed mood [Recovering/Resolving]
  - Fatigue [Not Recovered/Not Resolved]

NARRATIVE: CASE EVENT DATE: 20220323
